FAERS Safety Report 14691035 (Version 1)
Quarter: 2018Q1

REPORT INFORMATION
  Report Type: Spontaneous
  Country: GB (occurrence: GB)
  Receive Date: 20180328
  Receipt Date: 20180328
  Transmission Date: 20180509
  Serious: Yes (Other)
  Sender: FDA-Public Use
  Company Number: PHHY2018GB054729

PATIENT
  Age: 64 Year
  Sex: Male
  Weight: 57.15 kg

DRUGS (2)
  1. NYSTATIN. [Suspect]
     Active Substance: NYSTATIN
     Indication: ORAL CANDIDIASIS
     Dosage: 8 ML, QD
     Route: 048
     Dates: start: 20171107
  2. NYSTATIN. [Suspect]
     Active Substance: NYSTATIN
     Dosage: 8 ML, QD
     Route: 048
     Dates: start: 20171121

REACTIONS (3)
  - Mouth ulceration [Recovered/Resolved]
  - Lip pain [Recovered/Resolved]
  - Lip swelling [Recovered/Resolved]

NARRATIVE: CASE EVENT DATE: 20171110
